FAERS Safety Report 12947610 (Version 1)
Quarter: 2016Q4

REPORT INFORMATION
  Report Type: Spontaneous
  Country: US (occurrence: US)
  Receive Date: 20161116
  Receipt Date: 20161116
  Transmission Date: 20170207
  Serious: Yes (Other)
  Sender: FDA-Public Use
  Company Number: US-APOTEX-2016AP014410

PATIENT
  Sex: Male
  Weight: 97.7 kg

DRUGS (13)
  1. L-ARGININE                         /00126101/ [Concomitant]
     Active Substance: ARGININE
     Indication: CHEST DISCOMFORT
  2. LIPITOR [Suspect]
     Active Substance: ATORVASTATIN CALCIUM
     Indication: LOW DENSITY LIPOPROTEIN ABNORMAL
     Dosage: UNK
     Route: 065
  3. METOPROLOL SUCCINATE. [Suspect]
     Active Substance: METOPROLOL SUCCINATE
     Dosage: HALF OF A 25 MG TABLET AT BEDTIME
     Route: 065
  4. ATORVASTATIN CALCIUM. [Suspect]
     Active Substance: ATORVASTATIN CALCIUM
     Indication: LOW DENSITY LIPOPROTEIN ABNORMAL
     Dosage: 40 MG, QD
     Route: 048
  5. ATORVASTATIN CALCIUM. [Suspect]
     Active Substance: ATORVASTATIN CALCIUM
     Dosage: 80 MG, QD
     Route: 048
  6. METOPROLOL SUCCINATE. [Suspect]
     Active Substance: METOPROLOL SUCCINATE
     Indication: PRODUCT USED FOR UNKNOWN INDICATION
     Dosage: UNK
     Route: 065
  7. ASPIRIN                            /00002701/ [Concomitant]
     Active Substance: ASPIRIN
     Indication: CARDIAC DISORDER
     Dosage: 325 MG, UNK
     Route: 065
  8. ASPIRIN                            /00002701/ [Concomitant]
     Active Substance: ASPIRIN
     Dosage: 81 MG, QD
     Route: 065
  9. GLUCOSAMINE CHONDROITIN            /08437701/ [Concomitant]
     Indication: ARTHRITIS
     Dosage: UNK, BID
     Route: 065
  10. L-ARGININE                         /00126101/ [Concomitant]
     Active Substance: ARGININE
     Indication: CARDIAC DISORDER
     Dosage: 1000 MG, TID
     Route: 065
     Dates: start: 201607
  11. L-ARGININE                         /00126101/ [Concomitant]
     Active Substance: ARGININE
     Indication: ANGINA PECTORIS
  12. PEPCID AC [Concomitant]
     Active Substance: FAMOTIDINE
     Indication: GASTROOESOPHAGEAL REFLUX DISEASE
     Dosage: AT DINNER TIME
     Route: 065
  13. OMEPRAZOLE. [Concomitant]
     Active Substance: OMEPRAZOLE
     Indication: GASTROOESOPHAGEAL REFLUX DISEASE
     Dosage: 40 MG, QD
     Route: 065

REACTIONS (5)
  - Memory impairment [Recovering/Resolving]
  - Confusional state [Recovered/Resolved]
  - Fatigue [Recovered/Resolved]
  - Sinus node dysfunction [Unknown]
  - Drug interaction [Unknown]
